FAERS Safety Report 5098717-1 (Version None)
Quarter: 2006Q3

REPORT INFORMATION
  Report Type: 
  Country: None (occurrence: None)
  Receive Date: 20060905
  Receipt Date: 20060823
  Transmission Date: 20061208
  Serious: Yes (Death)
  Sender: FDA-Public Use
  Company Number: 2006000519

PATIENT
  Age: 86 Year
  Sex: Female

DRUGS (5)
  1. ROXANOL 20 [Suspect]
     Indication: AGITATION
     Dosage: 10 MG, EVERY HOUR; SUBLINGUAL
     Route: 060
     Dates: start: 20060304, end: 20060308
  2. ROXANOL 20 [Suspect]
     Indication: PAIN
     Dosage: 10 MG, EVERY HOUR; SUBLINGUAL
     Route: 060
     Dates: start: 20060304, end: 20060308
  3. ATIVAN [Concomitant]
  4. VALIUM [Concomitant]
  5. SCOPOLAMINE [Concomitant]

REACTIONS (1)
  - DRUG LEVEL INCREASED [None]
